FAERS Safety Report 24589581 (Version 1)
Quarter: 2024Q4

REPORT INFORMATION
  Report Type: Spontaneous
  Country: US (occurrence: None)
  Receive Date: 20241106
  Receipt Date: 20241106
  Transmission Date: 20250114
  Serious: No
  Sender: Public
  Company Number: None

PATIENT
  Sex: 0

DRUGS (1)
  1. OTEZLA [Suspect]
     Active Substance: APREMILAST

REACTIONS (4)
  - Pruritus [None]
  - Rash [None]
  - Drug hypersensitivity [None]
  - Therapy interrupted [None]
